FAERS Safety Report 8789571 (Version 2)
Quarter: 2012Q4

REPORT INFORMATION
  Report Type: Spontaneous
  Country: US (occurrence: None)
  Receive Date: 20120905
  Receipt Date: 20121102
  Transmission Date: 20130627
  Serious: Yes (Other)
  Sender: FDA-Public Use
  Company Number: 1208-454

PATIENT
  Age: 81 Year
  Sex: Female

DRUGS (3)
  1. EYLEA [Suspect]
     Route: 031
     Dates: start: 20120625
  2. EYLEA [Suspect]
  3. PLAVIX (CLOPIDOGREL) [Concomitant]

REACTIONS (5)
  - Endophthalmitis [None]
  - Iritis [None]
  - Fall [None]
  - Fluid retention [None]
  - Eye disorder [None]
